FAERS Safety Report 16850683 (Version 1)
Quarter: 2019Q3

REPORT INFORMATION
  Report Type: Spontaneous
  Country: US (occurrence: US)
  Receive Date: 20190925
  Receipt Date: 20190925
  Transmission Date: 20191005
  Serious: No
  Sender: FDA-Public Use
  Company Number: US-THERAPEUTICSMD-2019TMD01744

PATIENT
  Age: 79 Year
  Sex: Female
  Weight: 31.29 kg

DRUGS (4)
  1. IMVEXXY [Suspect]
     Active Substance: ESTRADIOL
     Dosage: 10 ?G, 2X/WEEK
     Route: 067
     Dates: start: 2019, end: 201907
  2. UNSPECIFIED EYE DROPS FOR GLAUCOMA [Concomitant]
     Route: 047
  3. UNSPECIFIED VITAMINS [Concomitant]
     Active Substance: VITAMINS
  4. IMVEXXY [Suspect]
     Active Substance: ESTRADIOL
     Indication: URINARY TRACT INFECTION
     Dosage: 10 ?G, 1X/DAY
     Route: 067
     Dates: start: 201906, end: 2019

REACTIONS (4)
  - Malaise [Unknown]
  - Nightmare [Unknown]
  - Weight increased [Unknown]
  - Off label use [Recovered/Resolved]

NARRATIVE: CASE EVENT DATE: 2019
